FAERS Safety Report 4659397-X (Version None)
Quarter: 2005Q2

REPORT INFORMATION
  Report Type: 
  Country: None (occurrence: None)
  Receive Date: 20050510
  Receipt Date: 20050427
  Transmission Date: 20051028
  Serious: Yes (Life-Threatening, Hospitalization, Other)
  Sender: FDA-Public Use
  Company Number: HQWYE600531MAR05

PATIENT
  Age: 57 Year
  Sex: Male

DRUGS (10)
  1. PANTOLOC (PANTOPRAZOLE, INJECTION) [Suspect]
     Indication: ABDOMINAL PAIN UPPER
     Dosage: 40 MG 1X PER 1 DAY
     Route: 042
     Dates: end: 20050215
  2. PANTOLOC (PANTOPRAZOLE, INJECTION) [Suspect]
     Indication: PELVIC PAIN
     Dosage: 40 MG 1X PER 1 DAY
     Route: 042
     Dates: end: 20050215
  3. PLASIL (METOCLOPRAMIDE HYDROCHLORIDE) [Suspect]
     Indication: NAUSEA
     Dosage: 10 MG 2X PER 1 DAY
     Route: 042
     Dates: start: 20050213, end: 20050215
  4. PLASIL (METOCLOPRAMIDE HYDROCHLORIDE) [Suspect]
     Indication: VOMITING
     Dosage: 10 MG 2X PER 1 DAY
     Route: 042
     Dates: start: 20050213, end: 20050215
  5. INSULATARD NPH HUMAN [Concomitant]
  6. XANOR (ALPRAZOLAM) [Concomitant]
  7. TOPAMAX [Concomitant]
  8. NORVASC [Concomitant]
  9. MOTILIUM [Concomitant]
  10. DUSPATALIN (MEBEVERINE HYDROCHLORIDE) [Concomitant]

REACTIONS (2)
  - ANGIONEUROTIC OEDEMA [None]
  - DIABETIC NEPHROPATHY [None]
